FAERS Safety Report 21521572 (Version 1)
Quarter: 2022Q4

REPORT INFORMATION
  Report Type: Spontaneous
  Country: US (occurrence: US)
  Receive Date: 20221028
  Receipt Date: 20221028
  Transmission Date: 20230113
  Serious: No
  Sender: FDA-Public Use
  Company Number: US-SANOFI-01332011

PATIENT
  Sex: Male

DRUGS (2)
  1. DUPIXENT [Suspect]
     Active Substance: DUPILUMAB
     Indication: Nasal polyps
     Dosage: UNK
  2. BUDESONIDE [Suspect]
     Active Substance: BUDESONIDE

REACTIONS (3)
  - Nasal polyps [Unknown]
  - Dry eye [Unknown]
  - Condition aggravated [Unknown]
